FAERS Safety Report 8729546 (Version 4)
Quarter: 2013Q1

REPORT INFORMATION
  Report Type: Report from Study
  Country: DE (occurrence: DE)
  Receive Date: 20120817
  Receipt Date: 20130214
  Transmission Date: 20140127
  Serious: Yes (Other)
  Sender: FDA-Public Use
  Company Number: DE-UCBSA-063507

PATIENT
  Sex: Female

DRUGS (8)
  1. CIMZIA [Suspect]
     Indication: RHEUMATOID ARTHRITIS
     Dosage: 200MG
     Route: 058
     Dates: start: 200911, end: 20111206
  2. OMEPRAZOL [Concomitant]
     Indication: PROPHYLAXIS
     Dates: start: 200611
  3. PREDNISOLONE [Concomitant]
     Indication: RHEUMATOID ARTHRITIS
     Dates: start: 200611, end: 20100119
  4. PREDNISOLONE [Concomitant]
     Indication: RHEUMATOID ARTHRITIS
     Dates: start: 20100120
  5. SIMVASTATIN [Concomitant]
     Indication: HYPERCHOLESTEROLAEMIA
     Dates: start: 20100225
  6. RAMIPRIL DURA PLUS [Concomitant]
     Indication: HYPERTENSION
     Dosage: 2.5/12.5MG
     Dates: start: 2006
  7. MICTONORM UNO [Concomitant]
     Indication: INCONTINENCE
     Dates: start: 2008
  8. MTX [Concomitant]
     Indication: RHEUMATOID ARTHRITIS
     Dosage: 1 IN ONE WEEK
     Dates: start: 200611

REACTIONS (1)
  - Rash [Recovered/Resolved]
